FAERS Safety Report 16524659 (Version 1)
Quarter: 2019Q3

REPORT INFORMATION
  Report Type: Spontaneous
  Country: JP (occurrence: JP)
  Receive Date: 20190703
  Receipt Date: 20190703
  Transmission Date: 20191004
  Serious: Yes (Hospitalization, Other)
  Sender: FDA-Public Use
  Company Number: JP-PFIZER INC-2018447930

PATIENT
  Age: 102 Year
  Sex: Female

DRUGS (2)
  1. WYPAX [Suspect]
     Active Substance: LORAZEPAM
     Dosage: 0.5MG, 2X/DAY (INTHE MORNING AND EVENING)
     Route: 048
     Dates: end: 20181017
  2. ANAFRANIL [Concomitant]
     Active Substance: CLOMIPRAMINE HYDROCHLORIDE
     Dosage: 10 MG, 1X/DAY (BEFORE GOING TO BED).
     Route: 048
     Dates: end: 20181017

REACTIONS (5)
  - Inappropriate schedule of product administration [Unknown]
  - Decreased appetite [Recovered/Resolved]
  - Depressed level of consciousness [Recovered/Resolved]
  - Pneumonia [Unknown]
  - Dysphagia [Recovering/Resolving]

NARRATIVE: CASE EVENT DATE: 20181017
